FAERS Safety Report 9716972 (Version 2)
Quarter: 2015Q3

REPORT INFORMATION
  Report Type: Spontaneous
  Country: US (occurrence: US)
  Receive Date: 20131127
  Receipt Date: 20150803
  Transmission Date: 20151125
  Serious: No
  Sender: FDA-Public Use
  Company Number: US-GILEAD-2009-0020220

PATIENT
  Age: 81 Year
  Sex: Female
  Weight: 103.42 kg

DRUGS (10)
  1. ZOCOR [Concomitant]
     Active Substance: SIMVASTATIN
  2. ZANTAC [Concomitant]
     Active Substance: RANITIDINE HYDROCHLORIDE
  3. HYDROCHLOROTHIAZIDE. [Concomitant]
     Active Substance: HYDROCHLOROTHIAZIDE
  4. CALCIUM/VITAMIN D [Concomitant]
     Active Substance: CALCIUM\VITAMIN D
  5. MULTIVITAMIN [Concomitant]
     Active Substance: VITAMINS
  6. LASIX [Concomitant]
     Active Substance: FUROSEMIDE
  7. POTASSIUM CHLORIDE. [Concomitant]
     Active Substance: POTASSIUM CHLORIDE
  8. LETAIRIS [Suspect]
     Active Substance: AMBRISENTAN
     Indication: PULMONARY ARTERIAL HYPERTENSION
     Route: 048
     Dates: start: 20081108
  9. ZETIA [Concomitant]
     Active Substance: EZETIMIBE
  10. KLONOPIN [Concomitant]
     Active Substance: CLONAZEPAM

REACTIONS (1)
  - Dyspnoea [Unknown]
